FAERS Safety Report 8368962-8 (Version None)
Quarter: 2012Q2

REPORT INFORMATION
  Report Type: 
  Country: None (occurrence: None)
  Receive Date: 20120518
  Receipt Date: 20120515
  Transmission Date: 20120825
  Serious: No
  Sender: FDA-Public Use
  Company Number: US-PFIZER INC-2012118968

PATIENT
  Sex: Female

DRUGS (5)
  1. SKELAXIN [Suspect]
     Dosage: UNK
  2. TOPAMAX [Suspect]
     Dosage: UNK
  3. EFFEXOR [Suspect]
     Dosage: UNK
  4. TRILEPTAL [Suspect]
     Dosage: UNK
  5. REQUIP [Suspect]
     Dosage: UNK

REACTIONS (1)
  - CONFUSIONAL STATE [None]
